FAERS Safety Report 9014273 (Version 1)
Quarter: 2013Q1

REPORT INFORMATION
  Report Type: Report from Study
  Country: CA (occurrence: CA)
  Receive Date: 20130115
  Receipt Date: 20130115
  Transmission Date: 20140127
  Serious: Yes (Other)
  Sender: FDA-Public Use
  Company Number: CA-JNJFOC-20130103601

PATIENT
  Sex: Male
  Weight: 102 kg

DRUGS (4)
  1. REMICADE [Suspect]
     Indication: ANKYLOSING SPONDYLITIS
     Route: 042
     Dates: start: 20060410
  2. REMICADE [Suspect]
     Indication: CROHN^S DISEASE
     Route: 042
     Dates: start: 20060410
  3. LOMOTIL [Concomitant]
     Dosage: WHEN REQUIRED
     Route: 065
  4. SOLU CORTEF [Concomitant]
     Indication: PROPHYLAXIS
     Route: 042

REACTIONS (1)
  - Muscle rupture [Recovered/Resolved]
